FAERS Safety Report 4584308-5 (Version None)
Quarter: 2005Q1

REPORT INFORMATION
  Report Type: 
  Country: None (occurrence: None)
  Receive Date: 20050125
  Receipt Date: 20041103
  Transmission Date: 20050727
  Serious: No
  Sender: FDA-Public Use
  Company Number: USA041082257

PATIENT
  Age: 76 Year
  Sex: Female

DRUGS (3)
  1. FORTEO [Suspect]
     Indication: OSTEOPOROSIS
     Dosage: 20 UG
     Dates: start: 20041025
  2. QUININE [Concomitant]
  3. MIACALCIN [Concomitant]

REACTIONS (3)
  - MEDICATION ERROR [None]
  - MUSCLE SPASMS [None]
  - OVERDOSE [None]
